FAERS Safety Report 7391480-0 (Version None)
Quarter: 2011Q2

REPORT INFORMATION
  Report Type: 
  Country: None (occurrence: None)
  Receive Date: 20110404
  Receipt Date: 20110323
  Transmission Date: 20111010
  Serious: Yes (Other)
  Sender: FDA-Public Use
  Company Number: DE-BAYER-2011-025559

PATIENT
  Sex: Female

DRUGS (1)
  1. INTERFERON BETA-1B [Suspect]

REACTIONS (2)
  - SWOLLEN TONGUE [None]
  - PRURITUS [None]
